FAERS Safety Report 25714965 (Version 2)
Quarter: 2025Q4

REPORT INFORMATION
  Report Type: Spontaneous
  Country: KR (occurrence: KR)
  Receive Date: 20250822
  Receipt Date: 20251007
  Transmission Date: 20260118
  Serious: No
  Sender: PFIZER
  Company Number: KR-PFIZER INC-PV202500101235

PATIENT
  Age: 16 Year
  Sex: Male

DRUGS (1)
  1. GENOTROPIN [Suspect]
     Active Substance: SOMATROPIN
     Indication: Congenital growth hormone deficiency
     Dosage: 7.2 IU, 1X/DAY (7 TIMES WEEKLY)
     Dates: start: 20241025

REACTIONS (1)
  - Device leakage [Unknown]
